FAERS Safety Report 18539891 (Version 1)
Quarter: 2020Q4

REPORT INFORMATION
  Report Type: Report from Study
  Country: None (occurrence: US)
  Receive Date: 20201124
  Receipt Date: 20201124
  Transmission Date: 20210114
  Serious: Yes (Death)
  Sender: FDA-Public Use
  Company Number: US-ABBVIE-20K-163-3484249-00

PATIENT
  Age: 80 Year
  Sex: Male

DRUGS (4)
  1. LUPRON [Suspect]
     Active Substance: LEUPROLIDE ACETATE
     Indication: PRODUCT USED FOR UNKNOWN INDICATION
     Route: 065
  2. XTANDI [Suspect]
     Active Substance: ENZALUTAMIDE
     Dosage: THERAPY DURATION: 9 MONTHS 14 DAYS
     Route: 048
     Dates: start: 2020, end: 2020
  3. XTANDI [Suspect]
     Active Substance: ENZALUTAMIDE
     Dosage: THERAPY DURATION: 9 MONTHS 14 DAYS
     Route: 048
     Dates: start: 2020, end: 20201031
  4. XTANDI [Suspect]
     Active Substance: ENZALUTAMIDE
     Indication: PROSTATE CANCER
     Dosage: THERAPY DURATION: 9 MONTHS 14 DAYS
     Route: 048
     Dates: start: 20200118, end: 2020

REACTIONS (4)
  - Death [Fatal]
  - Flushing [Not Recovered/Not Resolved]
  - Abdominal discomfort [Not Recovered/Not Resolved]
  - Hot flush [Not Recovered/Not Resolved]

NARRATIVE: CASE EVENT DATE: 20200513
